FAERS Safety Report 6240546-7 (Version None)
Quarter: 2009Q2

REPORT INFORMATION
  Report Type: 
  Country: None (occurrence: None)
  Receive Date: 20090623
  Receipt Date: 20080909
  Transmission Date: 20091009
  Serious: No
  Sender: FDA-Public Use
  Company Number: US-ASTRAZENECA-2008UW18642

PATIENT
  Age: 73 Year
  Sex: Male
  Weight: 56.7 kg

DRUGS (1)
  1. PULMICORT RESPULES [Suspect]
     Indication: DYSPNOEA
     Dosage: 0.25 MG, 1-2 AMPULES, 2-4 TIMES DAILY
     Route: 055
     Dates: start: 20080301

REACTIONS (4)
  - CHOKING [None]
  - DYSPHAGIA [None]
  - PHARYNGEAL OEDEMA [None]
  - THROAT IRRITATION [None]
